FAERS Safety Report 23610093 (Version 1)
Quarter: 2024Q1

REPORT INFORMATION
  Report Type: Spontaneous
  Country: US (occurrence: US)
  Receive Date: 20240308
  Receipt Date: 20240308
  Transmission Date: 20240409
  Serious: No
  Sender: FDA-Public Use
  Company Number: US-Blueprint Medicines Corporation-2650

PATIENT
  Sex: Female

DRUGS (1)
  1. AYVAKIT [Suspect]
     Active Substance: AVAPRITINIB
     Indication: Haematopoietic neoplasm
     Route: 065
     Dates: start: 20240118

REACTIONS (6)
  - Laboratory test abnormal [Unknown]
  - Red blood cell count decreased [Unknown]
  - Mean cell haemoglobin concentration abnormal [Unknown]
  - Red cell distribution width increased [Unknown]
  - Neutrophil count decreased [Unknown]
  - Lymphocyte count abnormal [Unknown]
